APPROVED DRUG PRODUCT: OXANDROLONE
Active Ingredient: OXANDROLONE
Strength: 2.5MG
Dosage Form/Route: TABLET;ORAL
Application: A076897 | Product #001
Applicant: SANDOZ INC
Approved: Dec 1, 2006 | RLD: No | RS: No | Type: DISCN